FAERS Safety Report 4859786-4 (Version None)
Quarter: 2005Q4

REPORT INFORMATION
  Report Type: 
  Country: None (occurrence: None)
  Receive Date: 20051215
  Receipt Date: 20051205
  Transmission Date: 20060501
  Serious: Yes (Other)
  Sender: FDA-Public Use
  Company Number: CHPA2000US03715

PATIENT
  Sex: Female

DRUGS (13)
  1. EX-LAX LAXATIVE UNKNOWN FORMULA (NCH) [Suspect]
     Indication: WEIGHT CONTROL
     Dosage: UNK, ORAL
     Route: 048
  2. DULCOLAX [Suspect]
     Indication: WEIGHT CONTROL
     Dosage: UNK, ORAL
     Route: 048
  3. DULCOLAX [Suspect]
     Indication: WEIGHT CONTROL
     Dosage: SEE IMAGE
     Route: 048
     Dates: start: 19860728, end: 19860728
  4. FEEN-A-MINT (PHENOLPHTHALEIN) [Suspect]
     Indication: WEIGHT CONTROL
     Dosage: UNK, ORAL
     Route: 048
  5. SENOKOT [Suspect]
     Indication: WEIGHT CONTROL
     Dosage: UNK, ORAL
     Route: 048
  6. FLEET LAXATIVE (BISACODYL) [Suspect]
     Indication: WEIGHT CONTROL
     Dosage: UNK, ORAL
     Route: 048
  7. NATURE'S REMEDY () UNKNOWN [Suspect]
     Indication: WEIGHT CONTROL
     Dosage: UNK, ORAL
     Route: 048
  8. CORRECTOL [Suspect]
     Indication: WEIGHT CONTROL
     Dosage: UNK, ORAL
     Route: 048
  9. TOPCARE () UNKNOWN [Suspect]
     Indication: WEIGHT CONTROL
     Dosage: UNK, ORAL
     Route: 048
  10. DIET FORMULATIONS FOR TREATMENT OF OBESITY (NO INGREDIENTS/SUBSTANCES) [Suspect]
     Indication: WEIGHT LOSS DIET
     Dosage: UNK
     Route: 065
  11. LAXATIVES (NO INGREDIENT/SUBSTANCES) [Suspect]
     Dosage: ORAL, UNK
     Route: 048
  12. MILK OF MAGNESIA TAB [Concomitant]
  13. DARVOCET-N 100 [Concomitant]

REACTIONS (11)
  - ABDOMINAL PAIN [None]
  - ANXIETY [None]
  - CONSTIPATION [None]
  - DIARRHOEA [None]
  - DRUG DEPENDENCE [None]
  - DRUG EXPOSURE DURING PREGNANCY [None]
  - ECONOMIC PROBLEM [None]
  - EMOTIONAL DISTRESS [None]
  - INJURY [None]
  - PAIN [None]
  - WEIGHT DECREASED [None]
